FAERS Safety Report 17525873 (Version 1)
Quarter: 2020Q1

REPORT INFORMATION
  Report Type: Spontaneous
  Country: US (occurrence: US)
  Receive Date: 20200303
  Receipt Date: 20200303
  Transmission Date: 20200409
  Serious: No
  Sender: FDA-Public Use
  Company Number: None

PATIENT
  Sex: Female

DRUGS (2)
  1. TEMOZOLOMIDE++ [Suspect]
     Active Substance: TEMOZOLOMIDE
     Indication: BRAIN NEOPLASM MALIGNANT
     Route: 048
     Dates: start: 20200118
  2. TEMOZOLOMIDE++# [Concomitant]
     Indication: BRAIN NEOPLASM MALIGNANT
     Route: 048
     Dates: start: 20200118

REACTIONS (2)
  - Fatigue [None]
  - Balance disorder [None]
